FAERS Safety Report 25286466 (Version 1)
Quarter: 2025Q2

REPORT INFORMATION
  Report Type: Report from Study
  Country: US (occurrence: US)
  Receive Date: 20250509
  Receipt Date: 20250509
  Transmission Date: 20250717
  Serious: Yes (Other)
  Sender: ABBVIE
  Company Number: US-ABBVIE-6269452

PATIENT
  Sex: Male

DRUGS (1)
  1. HUMIRA [Suspect]
     Active Substance: ADALIMUMAB
     Indication: Ankylosing spondylitis
     Route: 058
     Dates: start: 20190615

REACTIONS (4)
  - Blindness [Not Recovered/Not Resolved]
  - Eye pain [Unknown]
  - Eye swelling [Not Recovered/Not Resolved]
  - Ankylosing spondylitis [Unknown]
